FAERS Safety Report 22757459 (Version 5)
Quarter: 2023Q4

REPORT INFORMATION
  Report Type: Report from Study
  Country: PL (occurrence: None)
  Receive Date: 20230727
  Receipt Date: 20231002
  Transmission Date: 20240110
  Serious: Yes (Hospitalization)
  Sender: FDA-Public Use
  Company Number: PL-ROCHE-3371683

PATIENT
  Age: 67 Year
  Sex: Female
  Weight: 53 kg

DRUGS (3)
  1. ATEZOLIZUMAB [Suspect]
     Active Substance: ATEZOLIZUMAB
     Indication: Non-small cell lung cancer metastatic
     Dosage: 09/MAY/2023, 12:32 PM START DATE OF MOST RECENT DOSE OF STUDY DRUG PRIOR TO AE (1875 MG)?ON 16/MAY/2
     Route: 058
     Dates: start: 20221220
  2. ATEZOLIZUMAB [Suspect]
     Active Substance: ATEZOLIZUMAB
     Indication: Non-small cell lung cancer metastatic
     Dosage: 04/APR/2023 1:05 PM, START DATE OF MOST RECENT DOSE OF STUDY DRUG PRIOR TO AE.  04/APR/2023 1:05 PM,
     Route: 041
     Dates: start: 20230221
  3. EUTHYROX [Concomitant]
     Active Substance: LEVOTHYROXINE SODIUM
     Indication: Hypothyroidism
     Route: 048
     Dates: start: 201501

REACTIONS (1)
  - Dizziness [Recovering/Resolving]

NARRATIVE: CASE EVENT DATE: 20230523
